FAERS Safety Report 11910684 (Version 6)
Quarter: 2016Q1

REPORT INFORMATION
  Report Type: Spontaneous
  Country: JP (occurrence: JP)
  Receive Date: 20160112
  Receipt Date: 20160219
  Transmission Date: 20160526
  Serious: Yes (Other)
  Sender: FDA-Public Use
  Company Number: JP-ACTAVIS-2015-28983

PATIENT
  Age: 84 Year
  Sex: Male

DRUGS (5)
  1. VINCRISTINE (UNKNOWN) [Suspect]
     Active Substance: VINCRISTINE
     Indication: DIFFUSE LARGE B-CELL LYMPHOMA STAGE III
     Dosage: 1.1 MG/M2, CYCLICAL ON DAYS 1-5, ON A 21 DAY SCHEDULE AND THE PATIENT RECEIVED A TOAL OF 7 CYCLES
     Route: 065
  2. RITUXIMAB [Suspect]
     Active Substance: RITUXIMAB
     Indication: DIFFUSE LARGE B-CELL LYMPHOMA STAGE III
     Dosage: 375 MG/M2, CYCLICAL ON DAYS 1-5, ON A 21 DAY SCHEDULE AND THE PATIENT RECEIVED A TOAL OF 7 CYCLES
     Route: 065
  3. CYCLOPHOSPHAMIDE (UNKNOWN) [Suspect]
     Active Substance: CYCLOPHOSPHAMIDE
     Indication: DIFFUSE LARGE B-CELL LYMPHOMA STAGE III
     Dosage: 600 MG/M2, CYCLICAL ON DAYS 1-5, ON A 21 DAY SCHEDULE AND THE PATIENT RECEIVED A TOAL OF 7 CYCLES
     Route: 065
  4. PREDNISOLONE (UNKNOWN) [Suspect]
     Active Substance: PREDNISOLONE
     Indication: DIFFUSE LARGE B-CELL LYMPHOMA STAGE III
     Dosage: 40 MG/M2, CYCLICAL, ON DAYS 1-5, ON A 21 DAY SCHEDULE AND THE PATIENT RECEIVED A TOAL OF 7 CYCLES
     Route: 048
  5. DOXORUBICIN (UNKNOWN) [Suspect]
     Active Substance: DOXORUBICIN
     Indication: DIFFUSE LARGE B-CELL LYMPHOMA STAGE III
     Dosage: 40 MG/M2, CYCLICAL ON DAYS 1-5, ON A 21 DAY SCHEDULE AND THE PATIENT RECEIVED A TOAL OF 7 CYCLES
     Route: 065

REACTIONS (3)
  - Pneumonia bacterial [Recovered/Resolved]
  - Kaposi^s sarcoma [Recovered/Resolved]
  - Cytomegalovirus viraemia [Unknown]
